FAERS Safety Report 16962661 (Version 1)
Quarter: 2019Q4

REPORT INFORMATION
  Report Type: Spontaneous
  Country: US (occurrence: US)
  Receive Date: 20191025
  Receipt Date: 20191025
  Transmission Date: 20200122
  Serious: Yes (Other)
  Sender: FDA-Public Use
  Company Number: None

PATIENT
  Age: 71 Year
  Sex: Male
  Weight: 108.9 kg

DRUGS (15)
  1. METRONIDAZOLE 500MG [Suspect]
     Active Substance: METRONIDAZOLE
  2. ASPIRIN. [Concomitant]
     Active Substance: ASPIRIN
  3. CIPROFLOXACIN HCL 500 MG TAB [Suspect]
     Active Substance: CIPROFLOXACIN HYDROCHLORIDE
     Indication: POST PROCEDURAL INFECTION
     Dosage: ?          QUANTITY:14 TABLET(S);?
     Route: 048
     Dates: start: 20191023, end: 20191024
  4. LISINOPRIL. [Concomitant]
     Active Substance: LISINOPRIL
  5. COENZYME Q 10 [Concomitant]
  6. ASCORBIC ACID 250 MG [Concomitant]
  7. UBIQUINONE 100 MG [Concomitant]
  8. TUMERIC ROOT EXTRACT 500 MG [Concomitant]
  9. VITAMIN D3 CHOLECALCIFEROL [Concomitant]
  10. DOXAZOSIN [Concomitant]
     Active Substance: DOXAZOSIN MESYLATE
  11. METOPROLOL SUCCINATE. [Concomitant]
     Active Substance: METOPROLOL SUCCINATE
  12. HAWTHORN 500 MG [Concomitant]
  13. SPIRONOLACTONE. [Concomitant]
     Active Substance: SPIRONOLACTONE
  14. GLUCOSAMINE-CHOND-COMPLEX ORAL [Concomitant]
  15. MAGNESIUM ASPARTATE 61 MG (615MG) [Concomitant]

REACTIONS (6)
  - Reading disorder [None]
  - Agitation [None]
  - Anxiety [None]
  - Halo vision [None]
  - Headache [None]
  - Poverty of thought content [None]

NARRATIVE: CASE EVENT DATE: 20191024
